FAERS Safety Report 23764539 (Version 1)
Quarter: 2024Q2

REPORT INFORMATION
  Report Type: Spontaneous
  Country: US (occurrence: US)
  Receive Date: 20240420
  Receipt Date: 20240420
  Transmission Date: 20240715
  Serious: No
  Sender: FDA-Public Use
  Company Number: US-HALEON-2166083

PATIENT
  Sex: Female

DRUGS (2)
  1. NICOTINE [Suspect]
     Active Substance: NICOTINE
     Indication: Product used for unknown indication
  2. NICOTINE [Suspect]
     Active Substance: NICOTINE

REACTIONS (3)
  - Pruritus [Unknown]
  - Skin irritation [Unknown]
  - Erythema [Unknown]
